FAERS Safety Report 15982180 (Version 1)
Quarter: 2019Q1

REPORT INFORMATION
  Report Type: Spontaneous
  Country: PH (occurrence: PH)
  Receive Date: 20190219
  Receipt Date: 20190219
  Transmission Date: 20190418
  Serious: Yes (Other)
  Sender: FDA-Public Use
  Company Number: PHHY2019PH036376

PATIENT
  Age: 75 Year
  Sex: Female

DRUGS (3)
  1. KRYXANA [Suspect]
     Active Substance: RIBOCICLIB
     Dosage: 400 UNK, UNK
     Route: 065
  2. KRYXANA [Suspect]
     Active Substance: RIBOCICLIB
     Indication: METASTASIS
     Dosage: 600 MG, UNK
     Route: 065
  3. ANASTROZOLE. [Suspect]
     Active Substance: ANASTROZOLE
     Indication: METASTASIS
     Dosage: UNK
     Route: 065

REACTIONS (3)
  - Neutropenia [Recovering/Resolving]
  - Insomnia [Recovering/Resolving]
  - Thrombocytopenia [Recovering/Resolving]
